FAERS Safety Report 11556223 (Version 1)
Quarter: 2015Q3

REPORT INFORMATION
  Report Type: Spontaneous
  Country: US (occurrence: US)
  Receive Date: 20150925
  Receipt Date: 20150925
  Transmission Date: 20151125
  Serious: Yes (Other)
  Sender: FDA-Public Use
  Company Number: US-ABBVIE-15P-163-1469394-00

PATIENT
  Age: 17 Year
  Sex: Female
  Weight: 66.28 kg

DRUGS (1)
  1. HUMIRA [Suspect]
     Active Substance: ADALIMUMAB
     Indication: PSORIASIS
     Route: 058
     Dates: start: 201308, end: 201502

REACTIONS (3)
  - Haematemesis [Recovered/Resolved]
  - Abortion spontaneous [Unknown]
  - Haematuria [Recovered/Resolved]

NARRATIVE: CASE EVENT DATE: 201411
